FAERS Safety Report 13035511 (Version 1)
Quarter: 2016Q4

REPORT INFORMATION
  Report Type: Spontaneous
  Country: US (occurrence: US)
  Receive Date: 20161216
  Receipt Date: 20161216
  Transmission Date: 20170207
  Serious: Yes (Other)
  Sender: FDA-Public Use
  Company Number: US-ASTELLAS-2016US016045

PATIENT
  Sex: Female

DRUGS (1)
  1. TARCEVA [Suspect]
     Active Substance: ERLOTINIB HYDROCHLORIDE
     Indication: LUNG NEOPLASM MALIGNANT
     Dosage: UNK, UNKNOWN FREQ.
     Route: 065

REACTIONS (6)
  - Localised infection [Recovering/Resolving]
  - Nail bed bleeding [Unknown]
  - Ingrowing nail [Unknown]
  - Nail infection [Unknown]
  - Hepatic function abnormal [Unknown]
  - Dry skin [Unknown]
